FAERS Safety Report 18881861 (Version 9)
Quarter: 2024Q2

REPORT INFORMATION
  Report Type: Spontaneous
  Country: US (occurrence: US)
  Receive Date: 20210211
  Receipt Date: 20240508
  Transmission Date: 20240716
  Serious: Yes (Hospitalization, Other)
  Sender: FDA-Public Use
  Company Number: US-PFIZER INC-2021112332

PATIENT
  Age: 80 Year
  Sex: Female
  Weight: 63.492 kg

DRUGS (2)
  1. PREMARIN [Suspect]
     Active Substance: ESTROGENS, CONJUGATED
     Dosage: 0.625MG COPPER COLOR OVAL SHAPED TABLET ONE PER DAY
     Route: 048
  2. PREMARIN [Suspect]
     Active Substance: ESTROGENS, CONJUGATED
     Dosage: UNK
     Route: 048

REACTIONS (4)
  - Ulcer haemorrhage [Unknown]
  - Intra-abdominal haemorrhage [Unknown]
  - COVID-19 [Recovered/Resolved]
  - Headache [Unknown]

NARRATIVE: CASE EVENT DATE: 20210101
